FAERS Safety Report 24625716 (Version 2)
Quarter: 2024Q4

REPORT INFORMATION
  Report Type: Spontaneous
  Country: FR (occurrence: FR)
  Receive Date: 20241115
  Receipt Date: 20241126
  Transmission Date: 20250115
  Serious: Yes (Other)
  Sender: AUROBINDO
  Company Number: FR-GSK-FR2024GSK132774

PATIENT
  Age: 68 Year
  Sex: Female

DRUGS (6)
  1. CARBOPLATIN [Suspect]
     Active Substance: CARBOPLATIN
     Indication: Neoplasm
     Dosage: UNK
     Route: 065
     Dates: start: 20240502
  2. CARBOPLATIN [Suspect]
     Active Substance: CARBOPLATIN
     Indication: Endometrial cancer recurrent
  3. PACLITAXEL [Suspect]
     Active Substance: PACLITAXEL
     Indication: Neoplasm
     Dosage: UNK
     Route: 065
     Dates: start: 20240502
  4. PACLITAXEL [Suspect]
     Active Substance: PACLITAXEL
     Indication: Endometrial cancer recurrent
  5. DOSTARLIMAB [Suspect]
     Active Substance: DOSTARLIMAB
     Indication: Neoplasm
     Dosage: 500 MILLIGRAM
     Route: 065
     Dates: start: 20240502
  6. DOSTARLIMAB [Suspect]
     Active Substance: DOSTARLIMAB
     Indication: Endometrial cancer recurrent

REACTIONS (1)
  - Immune-mediated adrenal insufficiency [Not Recovered/Not Resolved]

NARRATIVE: CASE EVENT DATE: 20241017
